FAERS Safety Report 7806456-6 (Version None)
Quarter: 2011Q4

REPORT INFORMATION
  Report Type: 
  Country: None (occurrence: None)
  Receive Date: 20111011
  Receipt Date: 20111005
  Transmission Date: 20120403
  Serious: Yes (Hospitalization, Other)
  Sender: FDA-Public Use
  Company Number: US-PFIZER INC-2011054256

PATIENT
  Sex: Male

DRUGS (9)
  1. CHANTIX [Suspect]
     Indication: SMOKING CESSATION THERAPY
     Dosage: STARTER PACK
     Dates: start: 20090101
  2. RIFAMPIN [Concomitant]
     Indication: HIDRADENITIS
     Dosage: UNK
     Dates: start: 20080101
  3. NYSTATIN [Concomitant]
     Indication: HIDRADENITIS
     Dosage: UNK
     Dates: start: 20040101
  4. WELLBUTRIN [Concomitant]
     Indication: DEPRESSION
     Dosage: UNK
     Dates: start: 20080101
  5. CELEXA [Concomitant]
     Indication: DEPRESSION
     Dosage: UNK
     Dates: start: 20080101
  6. NASONEX [Concomitant]
     Indication: HYPERSENSITIVITY
     Dosage: UNK
     Dates: start: 20050101
  7. OMEPRAZOLE [Concomitant]
     Indication: GASTROOESOPHAGEAL REFLUX DISEASE
     Dosage: UNK
     Dates: start: 20040101
  8. RITALIN [Concomitant]
     Indication: ATTENTION DEFICIT/HYPERACTIVITY DISORDER
     Dosage: UNK
     Dates: start: 20060101
  9. SALBUTAMOL [Concomitant]
     Indication: ASTHMA
     Dosage: UNK
     Dates: start: 20010101

REACTIONS (2)
  - SUICIDE ATTEMPT [None]
  - INJURY [None]
